FAERS Safety Report 16660689 (Version 1)
Quarter: 2019Q3

REPORT INFORMATION
  Report Type: Spontaneous
  Country: US (occurrence: US)
  Receive Date: 20190618
  Receipt Date: 20190618
  Transmission Date: 20191004
  Serious: Yes (Hospitalization)
  Sender: FDA-Public Use
  Company Number: None

PATIENT
  Age: 35 Month
  Sex: Male
  Weight: 10.9 kg

DRUGS (3)
  1. ZINECARD [Suspect]
     Active Substance: DEXRAZOXANE HYDROCHLORIDE
     Dates: end: 20190517
  2. CISPLATIN. [Suspect]
     Active Substance: CISPLATIN
     Dates: end: 20190516
  3. DOXORUBICIN HYDROCHLORIDE. [Suspect]
     Active Substance: DOXORUBICIN HYDROCHLORIDE
     Dates: end: 20190517

REACTIONS (11)
  - Acute hepatic failure [None]
  - Peritoneal haemorrhage [None]
  - Platelet transfusion [None]
  - Hypovolaemia [None]
  - Acute kidney injury [None]
  - Procedural complication [None]
  - Packed red blood cell transfusion [None]
  - Tumour haemorrhage [None]
  - General physical health deterioration [None]
  - Anaemia [None]
  - Hepatitis [None]

NARRATIVE: CASE EVENT DATE: 20190520
